FAERS Safety Report 4835735-X (Version None)
Quarter: 2005Q4

REPORT INFORMATION
  Report Type: 
  Country: None (occurrence: None)
  Receive Date: 20051123
  Receipt Date: 20051115
  Transmission Date: 20060501
  Serious: Yes (Other)
  Sender: FDA-Public Use
  Company Number: US-JNJFOC-20051004756

PATIENT
  Sex: Male
  Weight: 81.65 kg

DRUGS (2)
  1. REMICADE [Suspect]
     Route: 042
  2. REMICADE [Suspect]
     Indication: RHEUMATOID ARTHRITIS
     Dosage: 4 VIALS
     Route: 042

REACTIONS (9)
  - BOWEL SOUNDS ABNORMAL [None]
  - BRONCHOSPASM [None]
  - CHILLS [None]
  - CYANOSIS [None]
  - DYSPNOEA [None]
  - GALLBLADDER OPERATION [None]
  - HYPERHIDROSIS [None]
  - INFUSION RELATED REACTION [None]
  - PALLOR [None]
